FAERS Safety Report 4299615-3 (Version None)
Quarter: 2004Q1

REPORT INFORMATION
  Report Type: 
  Country: None (occurrence: None)
  Receive Date: 20040217
  Receipt Date: 20040204
  Transmission Date: 20041129
  Serious: No
  Sender: FDA-Public Use
  Company Number: 04P-167-0249907-00

PATIENT
  Age: 40 Year
  Sex: Female

DRUGS (2)
  1. MERIDIA [Suspect]
     Dosage: 15 MG, 1 IN 1 D, PER ORAL
     Route: 048
     Dates: start: 20030911, end: 20031006
  2. ZOPICLONE [Concomitant]

REACTIONS (2)
  - ASTHENIA [None]
  - SENSORY LOSS [None]
